FAERS Safety Report 6892470-4 (Version None)
Quarter: 2010Q3

REPORT INFORMATION
  Report Type: 
  Country: None (occurrence: None)
  Receive Date: 20100731
  Receipt Date: 20080530
  Transmission Date: 20110219
  Serious: No
  Sender: FDA-Public Use
  Company Number: US-PFIZER INC-2008027355

PATIENT
  Sex: Female
  Weight: 68.6 kg

DRUGS (6)
  1. AMLODIPINE [Suspect]
     Indication: HYPERTENSION
     Dates: start: 20080303, end: 20080325
  2. PREVACID [Concomitant]
  3. XALATAN [Concomitant]
  4. ANALGESICS [Concomitant]
  5. WARFARIN SODIUM [Concomitant]
  6. SYNTHROID [Concomitant]

REACTIONS (2)
  - BLOOD PRESSURE INADEQUATELY CONTROLLED [None]
  - HEADACHE [None]
